FAERS Safety Report 5908111-6 (Version None)
Quarter: 2008Q4

REPORT INFORMATION
  Report Type: 
  Country: None (occurrence: None)
  Receive Date: 20081003
  Receipt Date: 20080924
  Transmission Date: 20090506
  Serious: Yes (Hospitalization)
  Sender: FDA-Public Use
  Company Number: DE-PFIZER INC-2008080774

PATIENT
  Age: 46 Year
  Sex: Male
  Weight: 116 kg

DRUGS (1)
  1. GENOTROPIN [Suspect]
     Indication: HYPOPITUITARISM
     Dosage: DAILY DOSE:.4MG
     Route: 058
     Dates: start: 20070116, end: 20080116

REACTIONS (1)
  - PITUITARY TUMOUR BENIGN [None]
